FAERS Safety Report 12900295 (Version 1)
Quarter: 2016Q4

REPORT INFORMATION
  Report Type: Spontaneous
  Country: US (occurrence: US)
  Receive Date: 20161028
  Receipt Date: 20161028
  Transmission Date: 20170207
  Serious: No
  Sender: FDA-Public Use
  Company Number: None

PATIENT
  Age: 63 Year
  Sex: Male
  Weight: 68.3 kg

DRUGS (2)
  1. CLOPIDOGREL [Suspect]
     Active Substance: CLOPIDOGREL BISULFATE
     Indication: CORONARY ARTERY BYPASS
     Route: 048
     Dates: start: 20150728, end: 20160717
  2. ASPIRIN. [Suspect]
     Active Substance: ASPIRIN
     Indication: CORONARY ARTERY BYPASS
     Route: 048
     Dates: start: 20160510, end: 20160717

REACTIONS (10)
  - Thrombosis [None]
  - Limb amputation [None]
  - Peripheral ischaemia [None]
  - Encephalopathy [None]
  - Leg amputation [None]
  - Angina unstable [None]
  - Gastric haemorrhage [None]
  - Leukocytosis [None]
  - Haemoptysis [None]
  - Gastric disorder [None]

NARRATIVE: CASE EVENT DATE: 20160717
